FAERS Safety Report 25072512 (Version 1)
Quarter: 2025Q1

REPORT INFORMATION
  Report Type: Spontaneous
  Country: DE (occurrence: DE)
  Receive Date: 20250313
  Receipt Date: 20250313
  Transmission Date: 20250409
  Serious: Yes (Other)
  Sender: BIOTEST
  Company Number: DE-DCGMA-25204549

PATIENT
  Age: 2 Year
  Sex: Male
  Weight: 11 kg

DRUGS (7)
  1. YIMMUGO [Suspect]
     Active Substance: HUMAN IMMUNOGLOBULIN G-DIRA
     Indication: Immunodeficiency
  2. KCl 7.45%/Glukose 10% 1:1 [Concomitant]
     Indication: Hypokalaemia
  3. Aminopaed 10% [Concomitant]
     Indication: Parenteral nutrition
  4. SMOFLIPID [Concomitant]
     Active Substance: FISH OIL\MEDIUM-CHAIN TRIGLYCERIDES\OLIVE OIL\SOYBEAN OIL
     Indication: Parenteral nutrition
  5. Glukose 40% [Concomitant]
     Indication: Parenteral nutrition
  6. Addel junior [Concomitant]
     Indication: Parenteral nutrition
  7. Heparin 100 IE/ml [Concomitant]
     Indication: Anticoagulant therapy

REACTIONS (7)
  - Tachycardia [Recovered/Resolved]
  - Peripheral circulatory failure [Recovered/Resolved]
  - Pallor [Recovered/Resolved]
  - Chills [Recovered/Resolved]
  - Body temperature increased [Recovered/Resolved]
  - Infusion related reaction [Recovered/Resolved]
  - Restlessness [Recovered/Resolved]

NARRATIVE: CASE EVENT DATE: 20241231
